FAERS Safety Report 8967644 (Version 3)
Quarter: 2013Q1

REPORT INFORMATION
  Report Type: Spontaneous
  Country: AU (occurrence: None)
  Receive Date: 20121204
  Receipt Date: 20130129
  Transmission Date: 20140127
  Serious: Yes (Other)
  Sender: FDA-Public Use
  Company Number: 2012-004157

PATIENT
  Age: 75 Year
  Sex: Female

DRUGS (5)
  1. ACTONEL (RISEDRONATE SODIUM) TABLET, 150MG [Suspect]
     Route: 048
     Dates: start: 20110622
  2. ATACAND (CANDESARTAN CILEXETIL) [Concomitant]
  3. ASASANTIN (ACETYLSALICYLIC ACID DIPYRIDAMOLE) [Concomitant]
  4. LIPITOR (ATORVASTATIN CALCIUM) [Concomitant]
  5. PROGOUT (ALLOPURINOL) [Concomitant]

REACTIONS (5)
  - Osteomyelitis [None]
  - Osteonecrosis of jaw [None]
  - Primary sequestrum [None]
  - Bone loss [None]
  - Tooth loss [None]
